FAERS Safety Report 21534080 (Version 1)
Quarter: 2022Q4

REPORT INFORMATION
  Report Type: Spontaneous
  Country: US (occurrence: US)
  Receive Date: 20221101
  Receipt Date: 20221101
  Transmission Date: 20230113
  Serious: No
  Sender: FDA-Public Use
  Company Number: US-PARATEK PHARMACEUTICALS, INC.-2022PTK00268

PATIENT
  Sex: Female

DRUGS (1)
  1. NUZYRA [Suspect]
     Active Substance: OMADACYCLINE
     Indication: Skin bacterial infection
     Dosage: 450 MG
     Route: 048

REACTIONS (3)
  - Rash pruritic [Unknown]
  - Swelling [Unknown]
  - Urticaria [Unknown]
